FAERS Safety Report 12351998 (Version 3)
Quarter: 2016Q2

REPORT INFORMATION
  Report Type: Report from Study
  Country: JP (occurrence: JP)
  Receive Date: 20160510
  Receipt Date: 20160629
  Transmission Date: 20160815
  Serious: Yes (Hospitalization, Other)
  Sender: FDA-Public Use
  Company Number: JP-BAXTER-2016BAX018179

PATIENT
  Age: 65 Year
  Sex: Male

DRUGS (22)
  1. DOCETAXEL. [Suspect]
     Active Substance: DOCETAXEL
     Indication: OESOPHAGEAL CARCINOMA RECURRENT
     Dosage: FIRST COURSE
     Route: 041
     Dates: start: 20151021
  2. DOCETAXEL. [Suspect]
     Active Substance: DOCETAXEL
     Dosage: SECOND COURSE
     Route: 041
     Dates: start: 20151111
  3. GRANISETRON HYDROCHLORIDE. [Suspect]
     Active Substance: GRANISETRON HYDROCHLORIDE
     Indication: PROPHYLAXIS OF NAUSEA AND VOMITING
     Route: 041
     Dates: start: 20160226, end: 20160227
  4. NOVAMIN [Concomitant]
     Active Substance: PROCHLORPERAZINE MALEATE
     Indication: NAUSEA
     Route: 048
     Dates: start: 20151216, end: 20160414
  5. MAGMITT [Concomitant]
     Active Substance: MAGNESIUM OXIDE
     Indication: CONSTIPATION
     Route: 048
     Dates: start: 20160302
  6. SULFAMETHOXAZOLE/TRIMETHOPRIM [Concomitant]
     Active Substance: SULFAMETHOXAZOLE\TRIMETHOPRIM
     Indication: PROPHYLAXIS
     Route: 048
  7. ENDOXAN 1G [Suspect]
     Active Substance: CYCLOPHOSPHAMIDE
     Route: 041
     Dates: start: 20160227, end: 20160229
  8. CODEINE PHOSPHATE [Concomitant]
     Active Substance: CODEINE PHOSPHATE
     Indication: COUGH
     Route: 048
     Dates: start: 20141008, end: 20160328
  9. DOCETAXEL. [Suspect]
     Active Substance: DOCETAXEL
     Dosage: THIRD COURSE
     Route: 041
     Dates: start: 20151202
  10. MEDICON [Concomitant]
     Active Substance: DEXTROMETHORPHAN HYDROBROMIDE
     Indication: COUGH
     Route: 048
     Dates: start: 20140926, end: 20160401
  11. TAKECAB [Concomitant]
     Active Substance: VONOPRAZAN FUMURATE
     Indication: DECREASED APPETITE
     Route: 048
     Dates: start: 20150805
  12. ZOLPIDEM TARTRATE. [Concomitant]
     Active Substance: ZOLPIDEM TARTRATE
     Indication: INSOMNIA
     Route: 048
     Dates: start: 20160113
  13. SULFAMETHOXAZOLE/TRIMETHOPRIM [Concomitant]
     Active Substance: SULFAMETHOXAZOLE\TRIMETHOPRIM
     Dosage: CONTINUED
     Route: 048
     Dates: start: 20160425
  14. ENDOXAN 1G [Suspect]
     Active Substance: CYCLOPHOSPHAMIDE
     Indication: OESOPHAGEAL CARCINOMA RECURRENT
     Route: 041
     Dates: start: 20160226, end: 20160227
  15. DOCETAXEL. [Suspect]
     Active Substance: DOCETAXEL
     Dosage: FOURTH COURSE
     Route: 041
     Dates: start: 20160120
  16. SENNOSIDE [Concomitant]
     Active Substance: SENNOSIDES
     Indication: CONSTIPATION
     Route: 048
     Dates: start: 20160314
  17. ENDOXAN 1G [Suspect]
     Active Substance: CYCLOPHOSPHAMIDE
     Route: 065
  18. CLARITHROMYCIN 200 [Suspect]
     Active Substance: CLARITHROMYCIN
     Indication: PRODUCT USED FOR UNKNOWN INDICATION
     Dosage: 2 TABLETS
     Route: 048
     Dates: end: 20160110
  19. OXYCONTIN [Concomitant]
     Active Substance: OXYCODONE HYDROCHLORIDE
     Indication: CANCER PAIN
     Route: 048
     Dates: start: 20160113, end: 20160414
  20. OXINORM [Concomitant]
     Active Substance: OXYCODONE HYDROCHLORIDE
     Indication: CANCER PAIN
     Route: 048
     Dates: start: 20150708
  21. NAIXAN [Concomitant]
     Active Substance: NAPROXEN SODIUM
     Indication: CANCER PAIN
     Route: 048
     Dates: start: 20160127
  22. GANCICLOVIR. [Concomitant]
     Active Substance: GANCICLOVIR
     Indication: PROPHYLAXIS
     Route: 041
     Dates: start: 20160330, end: 20160407

REACTIONS (11)
  - Chlamydial infection [Unknown]
  - Interstitial lung disease [Recovering/Resolving]
  - Metastases to peritoneum [Unknown]
  - Disease recurrence [Recovering/Resolving]
  - Metastases to lymph nodes [Unknown]
  - Ascites [Unknown]
  - Metastases to bone [Unknown]
  - Metastases to pleura [Unknown]
  - Pancytopenia [Unknown]
  - Disease progression [Unknown]
  - Pulmonary fibrosis [Unknown]

NARRATIVE: CASE EVENT DATE: 20160324
